FAERS Safety Report 13037492 (Version 2)
Quarter: 2017Q1

REPORT INFORMATION
  Report Type: Report from Study
  Country: DE (occurrence: DE)
  Receive Date: 20161217
  Receipt Date: 20170105
  Transmission Date: 20170428
  Serious: Yes (Hospitalization, Other)
  Sender: FDA-Public Use
  Company Number: PHHY2016DE171636

PATIENT
  Age: 24 Year
  Sex: Female

DRUGS (1)
  1. GILENYA [Suspect]
     Active Substance: FINGOLIMOD HYDROCHLORIDE
     Indication: MULTIPLE SCLEROSIS
     Dosage: 0.5 MG, QD
     Route: 048
     Dates: start: 20160712, end: 20161028

REACTIONS (17)
  - Presyncope [Unknown]
  - Red blood cell count decreased [Recovered/Resolved]
  - Blood urine [Not Recovered/Not Resolved]
  - Vision blurred [Unknown]
  - Haemoglobin decreased [Recovered/Resolved]
  - Optic neuritis [Unknown]
  - Hypoaesthesia eye [Unknown]
  - Pupillary reflex impaired [Unknown]
  - Multiple sclerosis relapse [Unknown]
  - Visual acuity reduced [Unknown]
  - Haematocrit decreased [Recovering/Resolving]
  - Monocyte count increased [Unknown]
  - Neutrophil count increased [Unknown]
  - White blood cells urine positive [Not Recovered/Not Resolved]
  - Lymphocyte count decreased [Unknown]
  - Visual field defect [Unknown]
  - Depressive symptom [Unknown]

NARRATIVE: CASE EVENT DATE: 20161024
